FAERS Safety Report 5465497-7 (Version None)
Quarter: 2007Q3

REPORT INFORMATION
  Report Type: 
  Country: None (occurrence: None)
  Receive Date: 20070920
  Receipt Date: 20070920
  Transmission Date: 20080115
  Serious: Yes (Other)
  Sender: FDA-Public Use
  Company Number: None

PATIENT
  Age: 30 Year
  Sex: Female

DRUGS (1)
  1. NOVOLOG [Suspect]
     Indication: DIABETES MELLITUS
     Dosage: INJECT 5 TO 15 UNITS UNDER THE SKIN THREE TIMES A DAY BEFORE MEALS 90DS

REACTIONS (1)
  - PHARMACEUTICAL PRODUCT COMPLAINT [None]
